FAERS Safety Report 8236326-3 (Version None)
Quarter: 2012Q1

REPORT INFORMATION
  Report Type: 
  Country: None (occurrence: None)
  Receive Date: 20120327
  Receipt Date: 20120316
  Transmission Date: 20120608
  Serious: Yes (Other)
  Sender: FDA-Public Use
  Company Number: CA-JNJFOC-20120207804

PATIENT
  Sex: Female
  Weight: 82 kg

DRUGS (6)
  1. REMICADE [Suspect]
     Indication: CROHN'S DISEASE
     Route: 042
     Dates: start: 20120316
  2. BENADRYL [Concomitant]
     Indication: PREMEDICATION
     Route: 042
  3. BENADRYL [Concomitant]
     Route: 042
  4. SOLU-CORTEF [Concomitant]
     Indication: PREMEDICATION
     Dosage: 30 MINUTES BEFORE INFUSION
     Route: 042
  5. REMICADE [Suspect]
     Route: 042
     Dates: start: 20111118
  6. REMICADE [Suspect]
     Dosage: 408MG
     Route: 042
     Dates: start: 20090101

REACTIONS (6)
  - INFUSION RELATED REACTION [None]
  - HOT FLUSH [None]
  - ERYTHEMA [None]
  - OROPHARYNGEAL DISCOMFORT [None]
  - THROAT TIGHTNESS [None]
  - HYPOAESTHESIA [None]
